APPROVED DRUG PRODUCT: LAMOTRIGINE
Active Ingredient: LAMOTRIGINE
Strength: 25MG
Dosage Form/Route: TABLET, FOR SUSPENSION;ORAL
Application: A090401 | Product #003 | TE Code: AB
Applicant: AUROBINDO PHARMA LTD
Approved: Nov 4, 2009 | RLD: No | RS: No | Type: RX